FAERS Safety Report 9286441 (Version 2)
Quarter: 2013Q2

REPORT INFORMATION
  Report Type: Report from Study
  Country: CN (occurrence: CN)
  Receive Date: 20130513
  Receipt Date: 20130530
  Transmission Date: 20140414
  Serious: Yes (Death)
  Sender: FDA-Public Use
  Company Number: PHHY2013CN046710

PATIENT
  Age: 80 Year
  Sex: Male

DRUGS (1)
  1. SEBIVO [Suspect]
     Dosage: UNK

REACTIONS (1)
  - Death [Fatal]
